FAERS Safety Report 4987387-6 (Version None)
Quarter: 2006Q2

REPORT INFORMATION
  Report Type: 
  Country: None (occurrence: None)
  Receive Date: 20060501
  Receipt Date: 20050926
  Transmission Date: 20061013
  Serious: Yes (Hospitalization, Other)
  Sender: FDA-Public Use
  Company Number: PHNU2005DE03273

PATIENT
  Age: 67 Year
  Sex: Male
  Weight: 86 kg

DRUGS (3)
  1. CASODEX [Concomitant]
     Indication: PROSTATE CANCER METASTATIC
     Dosage: 50 MG, QD
     Route: 048
     Dates: start: 20010901, end: 20030301
  2. ZOLADEX [Concomitant]
     Indication: PROSTATE CANCER METASTATIC
     Dosage: 10.8 UNK, UNK
     Route: 058
     Dates: start: 20010901, end: 20051201
  3. ZOMETA [Suspect]
     Indication: METASTASES TO BONE
     Dosage: 4 MG, UNK
     Route: 042
     Dates: start: 20030305, end: 20050401

REACTIONS (7)
  - ABSCESS DRAINAGE [None]
  - ABSCESS JAW [None]
  - OSTEONECROSIS [None]
  - PURULENT DISCHARGE [None]
  - SEQUESTRECTOMY [None]
  - SWELLING [None]
  - X-RAY ABNORMAL [None]
